FAERS Safety Report 4307745-2 (Version None)
Quarter: 2004Q1

REPORT INFORMATION
  Report Type: 
  Country: None (occurrence: None)
  Receive Date: 20040227
  Receipt Date: 20040227
  Transmission Date: 20041129
  Serious: Yes (Hospitalization)
  Sender: FDA-Public Use
  Company Number: None

PATIENT
  Sex: Male
  Weight: 89 kg

DRUGS (2)
  1. INTERFERON 2 B (SEE IMAGE) [Suspect]
     Dosage: VACCINE THERAPY IV
     Route: 042
     Dates: start: 20010402
  2. INTERFERON 2 B (SEE IMAGE) [Suspect]
     Dosage: VACCINE THERAPY IV
     Route: 042
     Dates: start: 20010618

REACTIONS (5)
  - CIRCULATORY COLLAPSE [None]
  - HAEMOGLOBIN DECREASED [None]
  - HAEMORRHAGE [None]
  - MALIGNANT MELANOMA [None]
  - MYOCARDIAL INFARCTION [None]
